FAERS Safety Report 7685506-4 (Version None)
Quarter: 2011Q3

REPORT INFORMATION
  Report Type: 
  Country: None (occurrence: None)
  Receive Date: 20110816
  Receipt Date: 20110109
  Transmission Date: 20111222
  Serious: No
  Sender: FDA-Public Use
  Company Number: US-BAYER-2011-003234

PATIENT
  Sex: Female

DRUGS (1)
  1. MIRENA [Suspect]
     Dosage: UNK

REACTIONS (4)
  - ALOPECIA [None]
  - METRORRHAGIA [None]
  - DEVICE DISLOCATION [None]
  - PAIN [None]
